FAERS Safety Report 21087022 (Version 1)
Quarter: 2022Q3

REPORT INFORMATION
  Report Type: Spontaneous
  Country: ES (occurrence: None)
  Receive Date: 20220715
  Receipt Date: 20220715
  Transmission Date: 20221027
  Serious: Yes (Other)
  Sender: FDA-Public Use
  Company Number: 2022A247908

PATIENT
  Age: 58 Year
  Sex: Male

DRUGS (2)
  1. DURVALUMAB [Suspect]
     Active Substance: DURVALUMAB
     Indication: Renal cell carcinoma stage IV
     Dosage: 1500 MG D1/Q4W
     Route: 030
  2. DURVALUMAB [Suspect]
     Active Substance: DURVALUMAB
     Indication: Metastases to central nervous system
     Dosage: 1500 MG D1/Q4W
     Route: 030

REACTIONS (1)
  - Diffuse uveal melanocytic proliferation [Unknown]
